FAERS Safety Report 8477543-7 (Version None)
Quarter: 2012Q2

REPORT INFORMATION
  Report Type: 
  Country: None (occurrence: None)
  Receive Date: 20120629
  Receipt Date: 20120627
  Transmission Date: 20120825
  Serious: Yes (Disabling, Other)
  Sender: FDA-Public Use
  Company Number: PHHY2012NZ050996

PATIENT
  Age: 59 Year
  Sex: Female

DRUGS (4)
  1. CALCIUM CARBONATE [Concomitant]
     Indication: OSTEOPOROSIS
     Dosage: 1 DF, BID
     Route: 048
     Dates: start: 20070301
  2. ZOLEDRONOC ACID [Suspect]
     Indication: OSTEOPOROSIS
     Dosage: 5 MG
     Route: 042
     Dates: start: 20110502
  3. VENLAFAXINE [Concomitant]
     Indication: DEPRESSION
     Dosage: 2 DF, ONCE A DAILY
     Route: 048
     Dates: start: 20120601
  4. COLECALCIFEROL [Concomitant]
     Indication: OSTEOPOROSIS
     Dosage: ONCE MONTHLY
     Route: 048
     Dates: start: 20101201

REACTIONS (3)
  - WOLFF-PARKINSON-WHITE SYNDROME [None]
  - PALPITATIONS [None]
  - SUPRAVENTRICULAR TACHYCARDIA [None]
